FAERS Safety Report 18218518 (Version 2)
Quarter: 2020Q3

REPORT INFORMATION
  Report Type: Spontaneous
  Country: ES (occurrence: ES)
  Receive Date: 20200901
  Receipt Date: 20200904
  Transmission Date: 20201103
  Serious: Yes (Other)
  Sender: FDA-Public Use
  Company Number: NVSC2020ES239455

PATIENT
  Age: 29 Year
  Sex: Female

DRUGS (3)
  1. ADALIMUMAB [Suspect]
     Active Substance: ADALIMUMAB
     Indication: OCULAR SARCOIDOSIS
  2. ADALIMUMAB [Suspect]
     Active Substance: ADALIMUMAB
     Indication: PULMONARY SARCOIDOSIS
     Dosage: UNK
     Route: 065
     Dates: start: 2020
  3. ADALIMUMAB [Suspect]
     Active Substance: ADALIMUMAB
     Indication: CUTANEOUS SARCOIDOSIS

REACTIONS (4)
  - Demyelination [Unknown]
  - Off label use [Unknown]
  - IVth nerve paralysis [Unknown]
  - Multiple sclerosis [Unknown]
